FAERS Safety Report 4518227-7 (Version None)
Quarter: 2004Q4

REPORT INFORMATION
  Report Type: 
  Country: None (occurrence: None)
  Receive Date: 20041130
  Receipt Date: 20041116
  Transmission Date: 20050328
  Serious: Yes (Hospitalization)
  Sender: FDA-Public Use
  Company Number: US_0411108194

PATIENT
  Age: 18 Year
  Sex: Male

DRUGS (1)
  1. STRATTERA [Suspect]
     Dates: start: 20041109, end: 20041109

REACTIONS (10)
  - ABDOMINAL PAIN UPPER [None]
  - DEPRESSED LEVEL OF CONSCIOUSNESS [None]
  - DIARRHOEA [None]
  - DISORIENTATION [None]
  - DRY SKIN [None]
  - HOMICIDAL IDEATION [None]
  - RASH [None]
  - SINUSITIS [None]
  - URTICARIA [None]
  - VOMITING [None]
